FAERS Safety Report 19216329 (Version 1)
Quarter: 2021Q2

REPORT INFORMATION
  Report Type: Spontaneous
  Country: US (occurrence: US)
  Receive Date: 20210505
  Receipt Date: 20210505
  Transmission Date: 20210717
  Serious: Yes (Disabling)
  Sender: FDA-Public Use
  Company Number: US-SA-2021SA146043

PATIENT
  Age: 48 Year
  Sex: Female

DRUGS (1)
  1. DUPIXENT [Suspect]
     Active Substance: DUPILUMAB
     Indication: ASTHMA
     Dosage: 300 MG UNK
     Route: 058

REACTIONS (11)
  - Loss of personal independence in daily activities [Unknown]
  - Eczema [Recovering/Resolving]
  - Cough [Unknown]
  - Chest discomfort [Unknown]
  - Eye swelling [Unknown]
  - Dyspnoea [Unknown]
  - Erythema [Recovering/Resolving]
  - Asthma [Unknown]
  - Somnambulism [Unknown]
  - Wheezing [Unknown]
  - Product use issue [Unknown]

NARRATIVE: CASE EVENT DATE: 202010
